FAERS Safety Report 18107609 (Version 1)
Quarter: 2020Q3

REPORT INFORMATION
  Report Type: Spontaneous
  Country: CA (occurrence: CA)
  Receive Date: 20200804
  Receipt Date: 20200804
  Transmission Date: 20201103
  Serious: Yes (Hospitalization, Other)
  Sender: FDA-Public Use
  Company Number: CA-PFIZER INC-2020291110

PATIENT
  Sex: Male

DRUGS (29)
  1. AA CLOZAPINE [Suspect]
     Active Substance: CLOZAPINE
     Indication: SCHIZOAFFECTIVE DISORDER
     Dosage: 12.5 MG, 1X/DAY
     Route: 065
  2. AA CLOZAPINE [Suspect]
     Active Substance: CLOZAPINE
     Dosage: 37.5 MG, 1X/DAY
     Route: 065
  3. AA CLOZAPINE [Suspect]
     Active Substance: CLOZAPINE
     Dosage: 50 MG, 1X/DAY
     Route: 065
  4. AA CLOZAPINE [Suspect]
     Active Substance: CLOZAPINE
     Dosage: 62.5 MG, 1X/DAY
     Route: 065
  5. GABAPENTIN. [Concomitant]
     Active Substance: GABAPENTIN
     Dosage: 3 MG, 2X/DAY
     Route: 065
  6. QUETIAPINE. [Concomitant]
     Active Substance: QUETIAPINE
     Dosage: 1 DF, 2X/DAY
     Route: 065
  7. SENNA [SENNA ALEXANDRINA] [Concomitant]
     Active Substance: SENNA LEAF
     Dosage: UNK
     Route: 065
  8. AA CLOZAPINE [Suspect]
     Active Substance: CLOZAPINE
     Dosage: 50 MG, 1X/DAY
     Route: 065
  9. AA CLOZAPINE [Suspect]
     Active Substance: CLOZAPINE
     Dosage: 250 MG, 1X/DAY
     Route: 065
  10. GABAPENTIN. [Concomitant]
     Active Substance: GABAPENTIN
     Dosage: 300 MG, 2X/DAY
     Route: 065
  11. HALOPERIDOL. [Concomitant]
     Active Substance: HALOPERIDOL
     Dosage: UNK
     Route: 030
  12. LORAZEPAM. [Concomitant]
     Active Substance: LORAZEPAM
     Dosage: UNK
     Route: 042
  13. FERROUS FUMARATE [Concomitant]
     Active Substance: FERROUS FUMARATE
     Dosage: UNK
     Route: 065
  14. PYRIDOXINE [Concomitant]
     Active Substance: PYRIDOXINE
     Dosage: UNK
     Route: 065
  15. QUETIAPINE. [Concomitant]
     Active Substance: QUETIAPINE
     Dosage: 50 MG, 2X/DAY
     Route: 065
  16. ACETAMINOPHEN. [Concomitant]
     Active Substance: ACETAMINOPHEN
     Dosage: UNK
     Route: 065
  17. BISOPROLOL [Concomitant]
     Active Substance: BISOPROLOL
     Dosage: 2.5 MG
     Route: 065
  18. FENTANYL. [Suspect]
     Active Substance: FENTANYL
     Dosage: UNK
     Route: 065
  19. HYDROMORPHONE [Concomitant]
     Active Substance: HYDROMORPHONE
     Dosage: UNK
     Route: 058
  20. PALIPERIDONE PALMITATE [Concomitant]
     Active Substance: PALIPERIDONE PALMITATE
     Dosage: 150 MG
     Route: 030
  21. SUBOXONE [Concomitant]
     Active Substance: BUPRENORPHINE HYDROCHLORIDE\NALOXONE HYDROCHLORIDE
     Dosage: 16 MG
     Route: 060
  22. AA CLOZAPINE [Suspect]
     Active Substance: CLOZAPINE
     Indication: SCHIZOPHRENIA
     Dosage: 12.5 MG, 1X/DAY
     Route: 065
  23. CEPHALEXIN [CEFALEXIN] [Suspect]
     Active Substance: CEPHALEXIN
     Dosage: 500 MG, 4X/DAY
     Route: 048
  24. BISOPROLOL [Concomitant]
     Active Substance: BISOPROLOL
     Dosage: 5 MG, 1X/DAY
     Route: 065
  25. ISONIAZID. [Concomitant]
     Active Substance: ISONIAZID
     Dosage: 900 MG
     Route: 065
  26. SUBOXONE [Concomitant]
     Active Substance: BUPRENORPHINE HYDROCHLORIDE\NALOXONE HYDROCHLORIDE
     Dosage: UNK
     Route: 060
  27. AA CLOZAPINE [Suspect]
     Active Substance: CLOZAPINE
     Dosage: 25 MG, 1X/DAY
     Route: 065
  28. NICOTINE. [Concomitant]
     Active Substance: NICOTINE
     Dosage: UNK
     Route: 065
  29. VITAMIN B6 [Concomitant]
     Active Substance: PYRIDOXINE HYDROCHLORIDE
     Dosage: UNK
     Route: 065

REACTIONS (4)
  - Overdose [Recovered/Resolved]
  - Sedation [Recovered/Resolved]
  - Neglect of personal appearance [Recovered/Resolved]
  - Neutropenia [Recovered/Resolved]
